FAERS Safety Report 15228175 (Version 1)
Quarter: 2018Q3

REPORT INFORMATION
  Report Type: Spontaneous
  Country: US (occurrence: US)
  Receive Date: 20180706
  Receipt Date: 20180706
  Transmission Date: 20181010
  Serious: Yes (Hospitalization)
  Sender: FDA-Public Use
  Company Number: None

PATIENT
  Age: 64 Year
  Sex: Female

DRUGS (4)
  1. PROMETHAZINE INJ 25MG (QTY 75) [Suspect]
     Active Substance: PROMETHAZINE HYDROCHLORIDE
  2. CLINDAMYCIN. [Concomitant]
     Active Substance: CLINDAMYCIN
  3. PROMETHAZINE INJ 25MG/ML (QTY 25) [Suspect]
     Active Substance: PROMETHAZINE HYDROCHLORIDE
     Indication: CROHN^S DISEASE
     Route: 058
     Dates: start: 201402
  4. FENTANYL. [Concomitant]
     Active Substance: FENTANYL

REACTIONS (1)
  - Hospitalisation [None]
